FAERS Safety Report 8365469-9 (Version None)
Quarter: 2012Q2

REPORT INFORMATION
  Report Type: 
  Country: None (occurrence: None)
  Receive Date: 20120516
  Receipt Date: 20120508
  Transmission Date: 20120825
  Serious: Yes (Congenital Anomaly, Other)
  Sender: FDA-Public Use
  Company Number: GXKR2007FR07790

PATIENT

DRUGS (4)
  1. MYCOPHENOLATE MOFETIL [Suspect]
     Route: 064
  2. PREDNISONE TAB [Suspect]
     Route: 064
  3. HYDROXYCHLOROQUINE SULFATE [Suspect]
     Route: 064
  4. PERINDOPRIL ERBUMINE [Suspect]
     Route: 064

REACTIONS (14)
  - CARDIAC DISORDER [None]
  - FOETAL EXPOSURE DURING PREGNANCY [None]
  - NAIL DISORDER [None]
  - ANOPHTHALMOS [None]
  - MICROSTOMIA [None]
  - EXTERNAL AUDITORY CANAL ATRESIA [None]
  - RENAL HYPOPLASIA [None]
  - FALLOT'S TETRALOGY [None]
  - HYPERTELORISM OF ORBIT [None]
  - ANOTIA [None]
  - MICROGNATHIA [None]
  - RENAL DISORDER [None]
  - DYSMORPHISM [None]
  - POLYDACTYLY [None]
